FAERS Safety Report 5079798-8 (Version None)
Quarter: 2006Q3

REPORT INFORMATION
  Report Type: 
  Country: None (occurrence: None)
  Receive Date: 20060815
  Receipt Date: 20060803
  Transmission Date: 20061208
  Serious: Yes (Other)
  Sender: FDA-Public Use
  Company Number: PHBS2006IT11577

PATIENT
  Age: 68 Year
  Sex: Female

DRUGS (2)
  1. ZOMETA [Suspect]
     Indication: METASTASES TO BONE
     Dosage: 4 MG, QMO
     Route: 042
     Dates: start: 20020903, end: 20060103
  2. AREDIA [Suspect]
     Indication: MULTIPLE MYELOMA
     Route: 042
     Dates: start: 20010103, end: 20020903

REACTIONS (3)
  - HYPERBARIC OXYGEN THERAPY [None]
  - OSTEONECROSIS [None]
  - TOOTH EXTRACTION [None]
